FAERS Safety Report 5359125-9 (Version None)
Quarter: 2007Q2

REPORT INFORMATION
  Report Type: 
  Country: None (occurrence: None)
  Receive Date: 20070530
  Receipt Date: 20070206
  Transmission Date: 20071010
  Serious: No
  Sender: FDA-Public Use
  Company Number: 2007PV029662

PATIENT
  Age: 41 Year
  Sex: Female
  Weight: 80.7403 kg

DRUGS (5)
  1. BYETTA [Suspect]
     Indication: DIABETES MELLITUS NON-INSULIN-DEPENDENT
     Dosage: 5 MCG BID SC
     Route: 058
     Dates: start: 20070206
  2. METFORMIN HCL [Concomitant]
  3. AMARYL [Concomitant]
  4. ALBUTEROL [Concomitant]
  5. RELEFLEX [Concomitant]

REACTIONS (3)
  - DYSGEUSIA [None]
  - ERUCTATION [None]
  - PARAESTHESIA ORAL [None]
